FAERS Safety Report 15153223 (Version 8)
Quarter: 2024Q2

REPORT INFORMATION
  Report Type: Other
  Country: HU (occurrence: HU)
  Receive Date: 20180717
  Receipt Date: 20240510
  Transmission Date: 20240716
  Serious: Yes (Other)
  Sender: FDA-Public Use
  Company Number: HU-TEVA-2018-HU-883237

PATIENT
  Age: 30 Year
  Sex: Male

DRUGS (7)
  1. CELLCEPT [Suspect]
     Active Substance: MYCOPHENOLATE MOFETIL
     Indication: Immunosuppressant drug therapy
     Dosage: UNK
     Route: 065
  2. CELLCEPT [Suspect]
     Active Substance: MYCOPHENOLATE MOFETIL
     Indication: Heart transplant
  3. PROGRAF [Suspect]
     Active Substance: TACROLIMUS
     Indication: Heart transplant
     Route: 065
  4. PROGRAF [Suspect]
     Active Substance: TACROLIMUS
     Indication: Immunosuppressant drug therapy
  5. MYCOPHENOLIC ACID [Suspect]
     Active Substance: MYCOPHENOLIC ACID
     Indication: Heart transplant
     Route: 065
  6. METHYLPREDNISOLONE [Concomitant]
     Active Substance: METHYLPREDNISOLONE
     Indication: Heart transplant
  7. RITUXIMAB [Concomitant]
     Active Substance: RITUXIMAB
     Indication: Transplant rejection
     Dosage: UNK
     Route: 065

REACTIONS (8)
  - Ventricular hypokinesia [Unknown]
  - Myocarditis [Recovered/Resolved]
  - Left ventricular dysfunction [Recovered/Resolved]
  - Supraventricular tachycardia [Unknown]
  - Heart transplant rejection [Recovering/Resolving]
  - Dyspnoea exertional [Recovering/Resolving]
  - Transplant rejection [Recovered/Resolved]
  - Off label use [Unknown]

NARRATIVE: CASE EVENT DATE: 20170301
